FAERS Safety Report 14183919 (Version 2)
Quarter: 2018Q2

REPORT INFORMATION
  Report Type: Spontaneous
  Country: US (occurrence: US)
  Receive Date: 20171113
  Receipt Date: 20180402
  Transmission Date: 20180711
  Serious: Yes (Hospitalization, Disabling, Other)
  Sender: FDA-Public Use
  Company Number: US-009507513-1711USA004424

PATIENT
  Sex: Female
  Weight: 76.19 kg

DRUGS (2)
  1. METOPROLOL. [Concomitant]
     Active Substance: METOPROLOL
     Indication: PALPITATIONS
     Dosage: UNK
     Route: 065
     Dates: start: 2007
  2. NUVARING [Suspect]
     Active Substance: ETHINYL ESTRADIOL\ETONOGESTREL
     Indication: CONTRACEPTION
     Dosage: 1 DF,  REMOVE OLD RING ON FIRST OF EVERY MONTH AND INSERT NEW ONE ON THE FIRTH OF EVERY MONTH
     Route: 067
     Dates: start: 200606, end: 201412

REACTIONS (8)
  - Swelling [Unknown]
  - Cognitive disorder [Unknown]
  - Inappropriate schedule of drug administration [Unknown]
  - Cerebrovascular accident [Recovering/Resolving]
  - Mitral valve prolapse [Unknown]
  - Hyperlipidaemia [Unknown]
  - Pain in extremity [Not Recovered/Not Resolved]
  - Sinus tachycardia [Unknown]

NARRATIVE: CASE EVENT DATE: 2007
